FAERS Safety Report 19358656 (Version 1)
Quarter: 2021Q2

REPORT INFORMATION
  Report Type: Spontaneous
  Country: US (occurrence: US)
  Receive Date: 20210602
  Receipt Date: 20210602
  Transmission Date: 20210717
  Serious: No
  Sender: FDA-Public Use
  Company Number: None

PATIENT
  Sex: Female

DRUGS (1)
  1. TALTZ [Suspect]
     Active Substance: IXEKIZUMAB

REACTIONS (6)
  - Dysstasia [None]
  - Loss of consciousness [None]
  - Blood pressure decreased [None]
  - Mobility decreased [None]
  - Blood pressure increased [None]
  - Vomiting [None]

NARRATIVE: CASE EVENT DATE: 20210524
